FAERS Safety Report 7752141-9 (Version None)
Quarter: 2011Q3

REPORT INFORMATION
  Report Type: 
  Country: None (occurrence: None)
  Receive Date: 20110915
  Receipt Date: 20110909
  Transmission Date: 20111222
  Serious: No
  Sender: FDA-Public Use
  Company Number: US-PFIZER INC-2011214183

PATIENT

DRUGS (1)
  1. NORVASC [Suspect]
     Dosage: 5 MG, 2X/DAY

REACTIONS (1)
  - BLOOD PRESSURE INADEQUATELY CONTROLLED [None]
